FAERS Safety Report 9237138 (Version 1)
Quarter: 2013Q2

REPORT INFORMATION
  Report Type: Spontaneous
  Country: US (occurrence: US)
  Receive Date: 20130417
  Receipt Date: 20130417
  Transmission Date: 20140414
  Serious: Yes (Hospitalization, Disabling)
  Sender: FDA-Public Use
  Company Number: PHHY2013US028078

PATIENT
  Sex: Female

DRUGS (3)
  1. LOPRESSOR [Suspect]
     Dosage: 100 MG, UNK
  2. METOPROLOL [Suspect]
     Dosage: 50 MG, UNK
  3. METOPROLOL [Suspect]
     Dosage: 50 MG, UNK

REACTIONS (8)
  - Tachycardia [Unknown]
  - Heart rate increased [Unknown]
  - Nervous system disorder [Unknown]
  - Memory impairment [Unknown]
  - Malaise [Unknown]
  - Impaired work ability [Unknown]
  - Product quality issue [Unknown]
  - Drug ineffective [Unknown]
